FAERS Safety Report 4734941-2 (Version None)
Quarter: 2005Q3

REPORT INFORMATION
  Report Type: 
  Country: None (occurrence: None)
  Receive Date: 20050721
  Receipt Date: 20050426
  Transmission Date: 20060218
  Serious: No
  Sender: FDA-Public Use
  Company Number: 2005SP000368

PATIENT
  Age: 76 Year
  Sex: Male
  Weight: 79.3795 kg

DRUGS (4)
  1. LUNESTA [Suspect]
     Dosage: 2 MG;HS
     Dates: start: 20050423
  2. NORTRIPTYLINE HCL [Concomitant]
  3. ATIVAN [Concomitant]
  4. AMBIEN [Concomitant]

REACTIONS (3)
  - DRUG INEFFECTIVE [None]
  - MIDDLE INSOMNIA [None]
  - SOMNOLENCE [None]
